FAERS Safety Report 5389407-6 (Version None)
Quarter: 2007Q3

REPORT INFORMATION
  Report Type: 
  Country: None (occurrence: None)
  Receive Date: 20070717
  Receipt Date: 20070711
  Transmission Date: 20080115
  Serious: Yes (Other)
  Sender: FDA-Public Use
  Company Number: US-ASTRAZENECA-2007UW09645

PATIENT
  Age: 12 Year
  Sex: Male

DRUGS (9)
  1. PULMICORT [Suspect]
     Indication: ASTHMA
     Dosage: 200 DOSE UNIT
     Route: 055
     Dates: start: 20030901, end: 20070301
  2. PULMICORT [Suspect]
     Dosage: 200 DOSE UNIT
     Route: 055
  3. ALBUTEROL [Concomitant]
     Indication: DYSPNOEA
  4. CLARITIN [Concomitant]
  5. ELOCON [Concomitant]
     Indication: ECZEMA
  6. KEFLEX [Concomitant]
  7. ELIDEL [Concomitant]
     Indication: ECZEMA
  8. BACTROBAN [Concomitant]
  9. ACYCLOVIR [Concomitant]

REACTIONS (3)
  - ANKLE FRACTURE [None]
  - BONE INFARCTION [None]
  - LOWER LIMB FRACTURE [None]
